FAERS Safety Report 14176364 (Version 1)
Quarter: 2017Q4

REPORT INFORMATION
  Report Type: Spontaneous
  Country: IT (occurrence: IT)
  Receive Date: 20171109
  Receipt Date: 20171109
  Transmission Date: 20180321
  Serious: Yes (Life-Threatening)
  Sender: FDA-Public Use
  Company Number: IT-ASTRAZENECA-2017SF13504

PATIENT
  Age: 12664 Day
  Sex: Male
  Weight: 120 kg

DRUGS (5)
  1. SEROQUEL [Suspect]
     Active Substance: QUETIAPINE FUMARATE
     Indication: BIPOLAR DISORDER
     Dosage: 300.0MG UNKNOWN
     Route: 048
     Dates: start: 20171024, end: 20171024
  2. DELORAZEPAM [Suspect]
     Active Substance: DELORAZEPAM
     Dosage: 26 DROPS/TOTAL
     Route: 048
     Dates: start: 20171024
  3. SEROQUEL [Suspect]
     Active Substance: QUETIAPINE FUMARATE
     Indication: BIPOLAR DISORDER
     Dosage: 300MG,TEVA ITALIA UNKNOWN
     Route: 048
     Dates: start: 20171024, end: 20171024
  4. LYRICA [Suspect]
     Active Substance: PREGABALIN
     Dosage: 2 DOSAGE UNITS/TOTAL
     Route: 048
     Dates: start: 20171024, end: 20171024
  5. LAROXYL [Suspect]
     Active Substance: AMITRIPTYLINE HYDROCHLORIDE
     Dosage: 40 MG/ML, 20 DROPS/TOTAL
     Route: 048
     Dates: start: 20171024

REACTIONS (2)
  - Sopor [Recovered/Resolved]
  - Motor dysfunction [Recovered/Resolved]

NARRATIVE: CASE EVENT DATE: 20171024
